FAERS Safety Report 11749708 (Version 1)
Quarter: 2015Q4

REPORT INFORMATION
  Report Type: Spontaneous
  Country: IE (occurrence: IE)
  Receive Date: 20151118
  Receipt Date: 20151118
  Transmission Date: 20160304
  Serious: Yes (Other)
  Sender: FDA-Public Use
  Company Number: PHFR2006IE02596

PATIENT
  Sex: Female

DRUGS (1)
  1. CLOZAPINE. [Suspect]
     Active Substance: CLOZAPINE
     Indication: BORDERLINE PERSONALITY DISORDER
     Dosage: 300 MG, UNK
     Route: 048

REACTIONS (3)
  - Type 1 diabetes mellitus [Unknown]
  - Hepatitis C [Unknown]
  - Hepatic cirrhosis [Unknown]
